FAERS Safety Report 16557173 (Version 2)
Quarter: 2020Q2

REPORT INFORMATION
  Report Type: Spontaneous
  Country: CN (occurrence: CN)
  Receive Date: 20190711
  Receipt Date: 20200607
  Transmission Date: 20200713
  Serious: Yes (Hospitalization, Other)
  Sender: FDA-Public Use
  Company Number: CN-SUN PHARMACEUTICAL INDUSTRIES LTD-2019R1-213259

PATIENT
  Age: 22 Year
  Sex: Male

DRUGS (5)
  1. STANOZOLOL [Suspect]
     Active Substance: STANOZOLOL
     Dosage: 20 MILLIGRAM, DAILY
     Route: 065
  2. LIOTHYRONINE [Suspect]
     Active Substance: LIOTHYRONINE
     Indication: MUSCLE MASS
     Dosage: 25 MICROGRAM, DAILY
     Route: 065
  3. STANOZOLOL [Suspect]
     Active Substance: STANOZOLOL
     Indication: MUSCLE MASS
     Dosage: 10 MILLIGRAM, DAILY
     Route: 065
  4. CLENBUTEROL [Suspect]
     Active Substance: CLENBUTEROL
     Indication: MUSCLE MASS
     Dosage: 40 MICROGRAM, DAILY
     Route: 065
  5. CLENBUTEROL [Suspect]
     Active Substance: CLENBUTEROL
     Dosage: 80 MICROGRAM, DAILY
     Route: 065

REACTIONS (5)
  - Performance enhancing product use [Recovering/Resolving]
  - Liver injury [Recovering/Resolving]
  - Congestive cardiomyopathy [Recovering/Resolving]
  - Sinus tachycardia [Recovering/Resolving]
  - Left ventricular hypertrophy [Recovering/Resolving]
